FAERS Safety Report 15234832 (Version 2)
Quarter: 2019Q1

REPORT INFORMATION
  Report Type: Spontaneous
  Country: US (occurrence: US)
  Receive Date: 20180803
  Receipt Date: 20190114
  Transmission Date: 20190417
  Serious: No
  Sender: FDA-Public Use
  Company Number: US-LUPIN PHARMACEUTICALS INC.-2018-05342

PATIENT
  Age: 64 Year
  Sex: Female

DRUGS (1)
  1. CEFDINIR CAPSULES USP, 300 MG [Suspect]
     Active Substance: CEFDINIR
     Indication: LUNG INFECTION
     Dosage: 300 MG, BID
     Route: 048
     Dates: start: 20180323, end: 20180401

REACTIONS (3)
  - Joint swelling [Recovered/Resolved]
  - Arthralgia [Recovering/Resolving]
  - Limb discomfort [Recovering/Resolving]

NARRATIVE: CASE EVENT DATE: 20180330
